FAERS Safety Report 10891126 (Version 6)
Quarter: 2015Q3

REPORT INFORMATION
  Report Type: Report from Study
  Country: DE (occurrence: DE)
  Receive Date: 20150305
  Receipt Date: 20150902
  Transmission Date: 20151125
  Serious: Yes (Death, Life-Threatening, Hospitalization, Other)
  Sender: FDA-Public Use
  Company Number: PHHY2015DE025354

PATIENT
  Sex: Female
  Weight: 60 kg

DRUGS (6)
  1. EXEMESTANE. [Concomitant]
     Active Substance: EXEMESTANE
     Indication: BREAST CANCER METASTATIC
     Dosage: 25 MG, QD
     Route: 048
     Dates: start: 20150203, end: 20150304
  2. BELOC-ZOC FORTE [Concomitant]
     Indication: PRODUCT USED FOR UNKNOWN INDICATION
     Dosage: 190 MG, QD, IN THE MORNING
     Route: 048
  3. PASSPERTIN [Concomitant]
     Active Substance: METOCLOPRAMIDE HYDROCHLORIDE
     Indication: PRODUCT USED FOR UNKNOWN INDICATION
     Dosage: 10 MG, FOUR TIMES A DAY (QID)
     Route: 065
  4. EXEMESTANE. [Concomitant]
     Active Substance: EXEMESTANE
     Dosage: 25 MG, QD
     Route: 048
     Dates: start: 20150322, end: 20150408
  5. AFINITOR [Suspect]
     Active Substance: EVEROLIMUS
     Indication: BREAST CANCER METASTATIC
     Dosage: 10 MG, QD
     Route: 048
     Dates: start: 20150203, end: 20150304
  6. AFINITOR [Suspect]
     Active Substance: EVEROLIMUS
     Dosage: 10 MG, QD
     Route: 048
     Dates: start: 20150319, end: 20150408

REACTIONS (16)
  - Pneumonia [Fatal]
  - Dizziness [Recovering/Resolving]
  - Aspartate aminotransferase increased [Unknown]
  - Fractured sacrum [Recovered/Resolved]
  - Intervertebral disc protrusion [Recovered/Resolved]
  - Staphylococcal infection [Recovered/Resolved]
  - Blood creatine phosphokinase MB increased [Unknown]
  - Neutrophil count increased [Unknown]
  - Blood fibrinogen increased [Unknown]
  - Pyrexia [Recovering/Resolving]
  - Gamma-glutamyltransferase increased [Recovered/Resolved]
  - International normalised ratio increased [Unknown]
  - Blood creatine phosphokinase increased [Unknown]
  - General physical health deterioration [Recovered/Resolved]
  - Monocyte count increased [Unknown]
  - Blood lactate dehydrogenase increased [Unknown]

NARRATIVE: CASE EVENT DATE: 20150224
